FAERS Safety Report 4680594-1 (Version None)
Quarter: 2005Q2

REPORT INFORMATION
  Report Type: 
  Country: None (occurrence: None)
  Receive Date: 20050531
  Receipt Date: 20050428
  Transmission Date: 20051028
  Serious: Yes (Life-Threatening, Hospitalization)
  Sender: FDA-Public Use
  Company Number: 243834

PATIENT
  Age: 20 Year
  Sex: Male
  Weight: 90.7 kg

DRUGS (1)
  1. NOVOLOG MIX 70/30 [Suspect]
     Indication: DIABETES MELLITUS INSULIN-DEPENDENT
     Dosage: 45 IU, BID, SUBCUTANEOUS
     Route: 058
     Dates: start: 20041201

REACTIONS (1)
  - HYPOGLYCAEMIC COMA [None]
